FAERS Safety Report 14661719 (Version 2)
Quarter: 2018Q2

REPORT INFORMATION
  Report Type: Report from Study
  Country: US (occurrence: US)
  Receive Date: 20180320
  Receipt Date: 20180423
  Transmission Date: 20180711
  Serious: Yes (Hospitalization)
  Sender: FDA-Public Use
  Company Number: US-EXELIXIS-CABO-18012942

PATIENT
  Sex: Male

DRUGS (14)
  1. ATENOLOL. [Concomitant]
     Active Substance: ATENOLOL
  2. ATORVASTATIN CALCIUM. [Concomitant]
     Active Substance: ATORVASTATIN CALCIUM
  3. VITAMIN D3 [Concomitant]
     Active Substance: CHOLECALCIFEROL
  4. TYLENOL [Concomitant]
     Active Substance: ACETAMINOPHEN
  5. ASPIRIN. [Concomitant]
     Active Substance: ASPIRIN
  6. COLACE [Concomitant]
     Active Substance: DOCUSATE SODIUM
  7. ZANTAC [Concomitant]
     Active Substance: RANITIDINE HYDROCHLORIDE
  8. CALCIUM [Concomitant]
     Active Substance: CALCIUM
  9. IBUPROFEN. [Concomitant]
     Active Substance: IBUPROFEN
  10. ONDANSETRON HCL [Concomitant]
     Active Substance: ONDANSETRON HYDROCHLORIDE
  11. CABOMETYX [Suspect]
     Active Substance: CABOZANTINIB S-MALATE
     Indication: RENAL CANCER
     Dosage: 40 MG, QD
     Route: 048
     Dates: start: 20180206
  12. VOTRIENT [Concomitant]
     Active Substance: PAZOPANIB HYDROCHLORIDE
  13. NIFEDIPINE. [Concomitant]
     Active Substance: NIFEDIPINE
  14. DULCOLAX STOOL SOFTENER [Concomitant]
     Active Substance: DOCUSATE SODIUM

REACTIONS (1)
  - Cerebrovascular accident [Unknown]
